FAERS Safety Report 11286051 (Version 2)
Quarter: 2015Q3

REPORT INFORMATION
  Report Type: Spontaneous
  Country: DE (occurrence: None)
  Receive Date: 20150717
  Receipt Date: 20150811
  Transmission Date: 20151125
  Serious: Yes (Hospitalization)
  Sender: FDA-Public Use
  Company Number: DE-2015-2997

PATIENT
  Age: 8 Month
  Sex: Male
  Weight: 7 kg

DRUGS (1)
  1. HEMANGIOL [Suspect]
     Active Substance: PROPRANOLOL HYDROCHLORIDE
     Indication: PRODUCT USED FOR UNKNOWN INDICATION
     Route: 048
     Dates: start: 20150702

REACTIONS (2)
  - Blood pressure increased [None]
  - Accidental overdose [None]

NARRATIVE: CASE EVENT DATE: 20150702
